FAERS Safety Report 16854184 (Version 1)
Quarter: 2019Q4

REPORT INFORMATION
  Report Type: Spontaneous
  Country: US (occurrence: US)
  Receive Date: 20190926
  Receipt Date: 20190926
  Transmission Date: 20200122
  Serious: No
  Sender: FDA-Public Use
  Company Number: None

PATIENT
  Age: 45 Year
  Sex: Female
  Weight: 50.4 kg

DRUGS (26)
  1. CELEXA [Concomitant]
     Active Substance: CITALOPRAM HYDROBROMIDE
  2. AIMOVIG [Suspect]
     Active Substance: ERENUMAB-AOOE
     Indication: MIGRAINE
     Dosage: ?          QUANTITY:1 INJECTION(S);OTHER FREQUENCY:ONCE A MONTH;?
     Route: 030
     Dates: start: 20190328, end: 20190802
  3. VIIBRYD [Concomitant]
     Active Substance: VILAZODONE HYDROCHLORIDE
  4. VITAMIN B [Concomitant]
     Active Substance: VITAMIN B
  5. VITAMIN B12 [Concomitant]
     Active Substance: CYANOCOBALAMIN
  6. COQ10 (UBIQUINOL) [Concomitant]
  7. XYMOGEN SHAKE [Concomitant]
  8. (FLONASE SENTIMIST) PONARIS - NASAL OIL [Concomitant]
  9. C [Concomitant]
  10. LUGOL [Concomitant]
     Active Substance: IODINE\POTASSIUM IODIDE
  11. LOPRESSOR [Concomitant]
     Active Substance: METOPROLOL TARTRATE
  12. CURCUMIN [Concomitant]
     Active Substance: CURCUMIN
  13. PHOSPHATIDYLSERIN [Concomitant]
  14. ROBAXIN [Concomitant]
     Active Substance: METHOCARBAMOL
  15. VITAMIN D [Concomitant]
     Active Substance: VITAMIN D NOS
  16. MAGNESIUM [Concomitant]
     Active Substance: MAGNESIUM
  17. ALAMAX (ALA) [Concomitant]
  18. DHEA [Concomitant]
     Active Substance: PRASTERONE
  19. OPTI-CLEANSE [Concomitant]
  20. CDP CHOLINE [Concomitant]
  21. MUSCINEX [Concomitant]
  22. VERAMYST [Concomitant]
     Active Substance: FLUTICASONE FUROATE
  23. PROBIOTICS [Concomitant]
     Active Substance: PROBIOTICS NOS
  24. 60 BILLION OMEGA [Concomitant]
  25. QUERCERIN [Concomitant]
  26. NAC [Concomitant]
     Active Substance: ACETYLCYSTEINE

REACTIONS (5)
  - Myalgia [None]
  - Pain in extremity [None]
  - Arthralgia [None]
  - Gait disturbance [None]
  - Loss of personal independence in daily activities [None]

NARRATIVE: CASE EVENT DATE: 20190810
